FAERS Safety Report 13808262 (Version 3)
Quarter: 2018Q1

REPORT INFORMATION
  Report Type: Report from Study
  Country: US (occurrence: US)
  Receive Date: 20170728
  Receipt Date: 20180117
  Transmission Date: 20180508
  Serious: No
  Sender: FDA-Public Use
  Company Number: US-AMGEN-USASL2017067418

PATIENT
  Age: 76 Year
  Sex: Female

DRUGS (2)
  1. REPATHA [Suspect]
     Active Substance: EVOLOCUMAB
     Indication: LOW DENSITY LIPOPROTEIN INCREASED
     Dosage: 140 MG,Q2WK
     Route: 065
     Dates: start: 2015
  2. REPATHA [Suspect]
     Active Substance: EVOLOCUMAB
     Indication: BLOOD CHOLESTEROL INCREASED

REACTIONS (4)
  - Food allergy [Unknown]
  - Stress [Unknown]
  - Injection site pain [Unknown]
  - Blood glucose increased [Unknown]
